FAERS Safety Report 5254987-8 (Version None)
Quarter: 2007Q1

REPORT INFORMATION
  Report Type: 
  Country: None (occurrence: None)
  Receive Date: 20070305
  Receipt Date: 20070223
  Transmission Date: 20070707
  Serious: Yes (Hospitalization)
  Sender: FDA-Public Use
  Company Number: US-BRISTOL-MYERS SQUIBB COMPANY-13690391

PATIENT
  Age: 34 Year
  Sex: Female

DRUGS (10)
  1. CYTOXAN [Suspect]
     Indication: BREAST CANCER
     Dates: start: 20070126, end: 20070126
  2. ADRIAMYCIN PFS [Suspect]
     Indication: BREAST CANCER
     Dates: start: 20070126, end: 20070126
  3. BEVACIZUMAB [Suspect]
     Indication: BREAST CANCER
     Dates: start: 20070126, end: 20070126
  4. NEULASTA [Suspect]
     Indication: BREAST CANCER
     Dates: start: 20070127, end: 20070127
  5. PRILOSEC [Concomitant]
  6. SUDAFED 12 HOUR [Concomitant]
  7. NASONEX [Concomitant]
  8. EFFEXOR [Concomitant]
  9. KYTRIL [Concomitant]
  10. COMPAZINE [Concomitant]

REACTIONS (1)
  - BREAST CELLULITIS [None]
